FAERS Safety Report 10994203 (Version 4)
Quarter: 2017Q3

REPORT INFORMATION
  Report Type: Spontaneous
  Country: GB (occurrence: GB)
  Receive Date: 20150407
  Receipt Date: 20170918
  Transmission Date: 20171127
  Serious: Yes (Death)
  Sender: FDA-Public Use
  Company Number: GB-PFIZER INC-2015115310

PATIENT
  Age: 80 Year
  Sex: Female

DRUGS (10)
  1. CIPROFLOXACIN. [Suspect]
     Active Substance: CIPROFLOXACIN
     Indication: ANTIBIOTIC THERAPY
     Dosage: 500 MG, 2X/DAY
     Route: 048
  2. MEROPENEM. [Suspect]
     Active Substance: MEROPENEM
     Dosage: 1 G, 3X/DAY
     Route: 042
     Dates: start: 20141124, end: 20141223
  3. MEROPENEM. [Suspect]
     Active Substance: MEROPENEM
     Dosage: 1 G, 3X/DAY
     Route: 043
     Dates: start: 20141228, end: 20150107
  4. OMEPRAZOLE. [Suspect]
     Active Substance: OMEPRAZOLE
     Dosage: 40 MG, 1X/DAY
     Route: 045
     Dates: start: 20150112, end: 20150208
  5. LINEZOLID. [Suspect]
     Active Substance: LINEZOLID
     Indication: ANTIBIOTIC THERAPY
     Dosage: 600 MG, 2X/DAY
     Route: 048
     Dates: start: 20141230, end: 20150107
  6. VANCOMYCIN [Suspect]
     Active Substance: VANCOMYCIN
     Indication: ANTIBIOTIC THERAPY
     Dosage: 125 MG, 4X/DAY
     Route: 048
     Dates: start: 20141124, end: 20141128
  7. METRONIDAZOLE. [Suspect]
     Active Substance: METRONIDAZOLE
     Indication: ANTIBIOTIC THERAPY
     Dosage: 400 MG, 3X/DAY
     Route: 048
     Dates: start: 20141126, end: 20141205
  8. OMEPRAZOLE. [Suspect]
     Active Substance: OMEPRAZOLE
     Dosage: 40 MG, 2X/DAY
     Route: 042
     Dates: start: 20141025, end: 20150112
  9. TAZOCIN [Suspect]
     Active Substance: PIPERACILLIN SODIUM\TAZOBACTAM SODIUM
     Dosage: 4.5 G, 3X/DAY
     Route: 041
     Dates: start: 20150204, end: 20150207
  10. TAZOCIN [Suspect]
     Active Substance: PIPERACILLIN SODIUM\TAZOBACTAM SODIUM
     Indication: ANTIBIOTIC THERAPY
     Dosage: 4.5 G, 3X/DAY
     Route: 041
     Dates: start: 20150123, end: 20150127

REACTIONS (2)
  - Clostridium difficile infection [Fatal]
  - Product use issue [Unknown]

NARRATIVE: CASE EVENT DATE: 20141228
